FAERS Safety Report 21687642 (Version 1)
Quarter: 2022Q4

REPORT INFORMATION
  Report Type: Spontaneous
  Country: IT (occurrence: IT)
  Receive Date: 20221206
  Receipt Date: 20221206
  Transmission Date: 20230112
  Serious: Yes (Other)
  Sender: FDA-Public Use
  Company Number: IT-STERISCIENCE B.V.-2022-ST-000112

PATIENT
  Age: 67 Year
  Sex: Male

DRUGS (27)
  1. MIDAZOLAM [Suspect]
     Active Substance: MIDAZOLAM
     Indication: COVID-19 pneumonia
     Dosage: UNKNOWN
     Route: 065
  2. PIPERACILLIN SODIUM\TAZOBACTAM SODIUM [Suspect]
     Active Substance: PIPERACILLIN SODIUM\TAZOBACTAM SODIUM
     Indication: COVID-19 pneumonia
     Dosage: UNKNOWN
     Route: 065
  3. LABETALOL [Suspect]
     Active Substance: LABETALOL\LABETALOL HYDROCHLORIDE
     Indication: COVID-19 pneumonia
     Dosage: UNKNOWN
     Route: 065
  4. HYDROXYCHLOROQUINE [Suspect]
     Active Substance: HYDROXYCHLOROQUINE
     Indication: COVID-19 pneumonia
     Dosage: UNKNOWN
     Route: 065
  5. LOPINAVIR\RITONAVIR [Suspect]
     Active Substance: LOPINAVIR\RITONAVIR
     Indication: COVID-19 pneumonia
     Dosage: UNKNOWN
     Route: 065
  6. ANAKINRA [Suspect]
     Active Substance: ANAKINRA
     Indication: COVID-19 pneumonia
     Dosage: UNKNOWN
     Route: 065
  7. PROPOFOL [Suspect]
     Active Substance: PROPOFOL
     Indication: COVID-19 pneumonia
     Dosage: UNKNOWN
  8. FENTANYL [Suspect]
     Active Substance: FENTANYL
     Indication: COVID-19 pneumonia
     Dosage: UNKNOWN
     Route: 065
  9. CISATRACURIUM [Suspect]
     Active Substance: CISATRACURIUM
     Indication: COVID-19 pneumonia
     Dosage: UNKNOWN
     Route: 065
  10. LINEZOLID [Suspect]
     Active Substance: LINEZOLID
     Indication: COVID-19 pneumonia
     Dosage: UNKNOWN
     Route: 065
  11. THIAMINE [Suspect]
     Active Substance: THIAMINE
     Indication: COVID-19 pneumonia
     Dosage: UNKNOWN
     Route: 065
  12. IOPROMIDE [Suspect]
     Active Substance: IOPROMIDE
     Indication: COVID-19 pneumonia
     Dosage: UNKNOWN
     Route: 065
  13. OMEPRAZOLE [Suspect]
     Active Substance: OMEPRAZOLE
     Indication: COVID-19 pneumonia
     Dosage: UNKNOWN
     Route: 065
  14. CEFTRIAXONE [Suspect]
     Active Substance: CEFTRIAXONE
     Indication: COVID-19 pneumonia
     Dosage: UNKNOWN
     Route: 065
  15. FUROSEMIDE [Suspect]
     Active Substance: FUROSEMIDE
     Indication: COVID-19 pneumonia
     Dosage: UNKNOWN
     Route: 065
  16. ENOXAPARIN SODIUM [Suspect]
     Active Substance: ENOXAPARIN SODIUM
     Indication: COVID-19 pneumonia
     Dosage: UNKNOWN
     Route: 065
  17. QUETIAPINE [Suspect]
     Active Substance: QUETIAPINE
     Indication: COVID-19 pneumonia
     Dosage: UNKNOWN
     Route: 065
  18. NOREPINEPHRINE [Suspect]
     Active Substance: NOREPINEPHRINE
     Indication: COVID-19 pneumonia
     Dosage: UNKNOWN
     Route: 065
  19. ALPROSTADIL [Suspect]
     Active Substance: ALPROSTADIL
     Indication: COVID-19 pneumonia
     Dosage: UNKNOWN
     Route: 065
  20. ETHACRYNIC ACID [Suspect]
     Active Substance: ETHACRYNIC ACID
     Indication: COVID-19 pneumonia
     Dosage: UNKNOWN
     Route: 065
  21. CLONIDINE [Suspect]
     Active Substance: CLONIDINE
     Indication: COVID-19 pneumonia
     Dosage: UNKNOWN
     Route: 065
  22. ACETAZOLAMIDE [Suspect]
     Active Substance: ACETAZOLAMIDE
     Indication: COVID-19 pneumonia
     Dosage: UNKNOWN
     Route: 065
  23. FLUVOXAMINE [Suspect]
     Active Substance: FLUVOXAMINE
     Indication: COVID-19 pneumonia
     Dosage: UNKNOWN
     Route: 065
  24. PREDNISONE [Suspect]
     Active Substance: PREDNISONE
     Indication: COVID-19 pneumonia
     Dosage: UNKNOWN
     Route: 065
  25. HYDROXYZINE [Suspect]
     Active Substance: HYDROXYZINE HYDROCHLORIDE
     Indication: COVID-19 pneumonia
     Dosage: UNKNOWN
     Route: 065
  26. TIGECYCLINE [Suspect]
     Active Substance: TIGECYCLINE
     Indication: COVID-19 pneumonia
     Dosage: UNKNOWN
     Route: 065
  27. DAPTOMYCIN [Suspect]
     Active Substance: DAPTOMYCIN
     Indication: COVID-19 pneumonia
     Dosage: UNKNOWN
     Route: 065

REACTIONS (2)
  - Drug reaction with eosinophilia and systemic symptoms [Recovered/Resolved]
  - Off label use [Unknown]
